FAERS Safety Report 9900814 (Version 1)
Quarter: 2014Q1

REPORT INFORMATION
  Report Type: Spontaneous
  Country: US (occurrence: US)
  Receive Date: 20140217
  Receipt Date: 20140217
  Transmission Date: 20141002
  Serious: Yes (Other)
  Sender: FDA-Public Use
  Company Number: US-009507513-1402USA006827

PATIENT
  Sex: Male

DRUGS (5)
  1. VICTRELIS [Suspect]
     Indication: HEPATITIS C
     Route: 065
  2. PEGASYS [Suspect]
     Indication: HEPATITIS C
     Dosage: 180 MICROGRAM, QW (1 IN -1 WK)
     Route: 058
     Dates: start: 201308
  3. PEGASYS [Suspect]
     Dosage: 180 MICROGRAM, UNK
     Route: 065
     Dates: start: 20130917
  4. PEGASYS [Suspect]
     Dosage: 135 MICROGRAM, QW (1 IN 1 WK)
     Route: 058
     Dates: start: 20131224
  5. COPEGUS [Suspect]
     Indication: HEPATITIS C
     Dosage: 1 G, BID (2 IN 1D)
     Route: 048
     Dates: start: 20130917

REACTIONS (2)
  - Leukopenia [Recovered/Resolved]
  - Neutropenia [Recovered/Resolved]
